FAERS Safety Report 9972798 (Version 1)
Quarter: 2014Q1

REPORT INFORMATION
  Report Type: Spontaneous
  Country: US (occurrence: None)
  Receive Date: 20140127
  Receipt Date: 20140127
  Transmission Date: 20141002
  Serious: Yes (Other)
  Sender: FDA-Public Use
  Company Number: 1212368

PATIENT
  Age: 55 Year
  Sex: Female

DRUGS (1)
  1. RITUXAN [Suspect]
     Indication: RHEUMATOID ARTHRITIS
     Dosage: 1 IN 2  MONTHS
     Route: 042
     Dates: start: 20130327

REACTIONS (3)
  - Blood pressure increased [None]
  - White blood cell count decreased [None]
  - Leukopenia [None]
